APPROVED DRUG PRODUCT: CABERGOLINE
Active Ingredient: CABERGOLINE
Strength: 0.5MG
Dosage Form/Route: TABLET;ORAL
Application: A218109 | Product #001 | TE Code: AB
Applicant: SOMERSET THERAPEUTICS LLC
Approved: Sep 9, 2024 | RLD: No | RS: No | Type: RX